FAERS Safety Report 5253689-1 (Version None)
Quarter: 2007Q1

REPORT INFORMATION
  Report Type: 
  Country: None (occurrence: None)
  Receive Date: 20061201
  Receipt Date: 20060803
  Transmission Date: 20070707
  Serious: No
  Sender: FDA-Public Use
  Company Number: 2006PV018819

PATIENT
  Age: 31 Year
  Sex: Female
  Weight: 103.4201 kg

DRUGS (5)
  1. BYETTA [Suspect]
     Indication: DIABETES MELLITUS NON-INSULIN-DEPENDENT
     Dosage: SEE IMAGE
     Route: 058
     Dates: start: 20060401, end: 20060401
  2. BYETTA [Suspect]
     Indication: DIABETES MELLITUS NON-INSULIN-DEPENDENT
     Dosage: SEE IMAGE
     Route: 058
     Dates: start: 20060401
  3. METFORMIN HCL [Concomitant]
  4. AVANDAMENT [Concomitant]
  5. COUMADIN [Concomitant]

REACTIONS (3)
  - INJECTION SITE BRUISING [None]
  - INJECTION SITE PAIN [None]
  - WEIGHT DECREASED [None]
